FAERS Safety Report 5498011-0 (Version None)
Quarter: 2007Q4

REPORT INFORMATION
  Report Type: 
  Country: None (occurrence: None)
  Receive Date: 20071018
  Receipt Date: 20060920
  Transmission Date: 20080405
  Serious: Yes (Other)
  Sender: FDA-Public Use
  Company Number: 2006093743

PATIENT
  Age: 41 Year
  Sex: Male
  Weight: 86.1834 kg

DRUGS (3)
  1. NEURONTIN [Suspect]
     Indication: NEUROPATHY PERIPHERAL
     Dosage: 100 MG (100 MG, 1 IN 1 D)
     Dates: start: 20020101
  2. NEURONTIN [Suspect]
     Indication: RENAL FAILURE
     Dosage: 100 MG (100 MG, 1 IN 1 D)
     Dates: start: 20020101
  3. NEURONTIN [Suspect]
     Indication: URAEMIC NEUROPATHY
     Dosage: 100 MG (100 MG, 1 IN 1 D)
     Dates: start: 20020101

REACTIONS (1)
  - ATAXIA [None]
